FAERS Safety Report 4703853-2 (Version None)
Quarter: 2005Q2

REPORT INFORMATION
  Report Type: 
  Country: None (occurrence: None)
  Receive Date: 20050630
  Receipt Date: 20050523
  Transmission Date: 20051028
  Serious: No
  Sender: FDA-Public Use
  Company Number: US-GLAXOSMITHKLINE-A0559745A

PATIENT
  Age: 59 Year
  Sex: Male

DRUGS (4)
  1. FLOVENT [Suspect]
     Indication: ASTHMA
     Dosage: 220MCG TWICE PER DAY
     Route: 055
     Dates: start: 20050416
  2. ALBUTEROL [Concomitant]
     Route: 055
  3. ALBUTEROL [Concomitant]
     Route: 055
  4. THEOPHYLLINE [Concomitant]
     Dosage: 200MG THREE TIMES PER DAY
     Route: 048

REACTIONS (2)
  - DYSPNOEA [None]
  - PHARMACEUTICAL PRODUCT COMPLAINT [None]
